FAERS Safety Report 15117906 (Version 2)
Quarter: 2023Q4

REPORT INFORMATION
  Report Type: Spontaneous
  Country: US (occurrence: US)
  Receive Date: 20180706
  Receipt Date: 20231222
  Transmission Date: 20240110
  Serious: Yes (Hospitalization, Other)
  Sender: FDA-Public Use
  Company Number: US-JAZZ-2018-US-010576

PATIENT
  Age: 48 Year
  Sex: Female
  Weight: 68 kg

DRUGS (3)
  1. XYREM [Suspect]
     Active Substance: SODIUM OXYBATE
     Indication: Product used for unknown indication
     Route: 048
  2. ACETAMINOPHEN\OXYCODONE HYDROCHLORIDE [Suspect]
     Active Substance: ACETAMINOPHEN\OXYCODONE HYDROCHLORIDE
     Indication: Product used for unknown indication
  3. OXYCODONE [Suspect]
     Active Substance: OXYCODONE
     Indication: Product used for unknown indication

REACTIONS (8)
  - Coma [Recovered/Resolved]
  - Hypotension [Recovered/Resolved]
  - Suicide attempt [Unknown]
  - Respiratory depression [Recovered/Resolved]
  - Anal incontinence [Recovered/Resolved]
  - Confusional state [Recovered/Resolved]
  - Diarrhoea [Recovered/Resolved]
  - Hypertension [Recovered/Resolved]
